FAERS Safety Report 12673733 (Version 1)
Quarter: 2016Q3

REPORT INFORMATION
  Report Type: Spontaneous
  Country: FR (occurrence: FR)
  Receive Date: 20160822
  Receipt Date: 20160822
  Transmission Date: 20161109
  Serious: Yes (Hospitalization)
  Sender: FDA-Public Use
  Company Number: FR-SA-2016SA149380

PATIENT
  Age: 72 Year
  Sex: Female

DRUGS (5)
  1. LOVENOX [Suspect]
     Active Substance: ENOXAPARIN SODIUM
     Indication: CIRCULATING ANTICOAGULANT
     Route: 058
     Dates: start: 20160625
  2. PIPERACILLIN [Suspect]
     Active Substance: PIPERACILLIN
     Indication: INFECTION
     Route: 042
     Dates: start: 20160628, end: 20160630
  3. PIPERACILLIN [Suspect]
     Active Substance: PIPERACILLIN
     Indication: INFECTION
     Route: 042
     Dates: start: 20160606
  4. COLCHICINE. [Suspect]
     Active Substance: COLCHICINE
     Indication: GOUT
     Route: 048
     Dates: start: 20160624
  5. CIPROFLOXACIN HYDROCHLORIDE. [Suspect]
     Active Substance: CIPROFLOXACIN HYDROCHLORIDE
     Indication: INFECTION
     Route: 042
     Dates: start: 20160617, end: 20160630

REACTIONS (1)
  - Rash maculo-papular [Not Recovered/Not Resolved]

NARRATIVE: CASE EVENT DATE: 20160630
